FAERS Safety Report 13464178 (Version 1)
Quarter: 2017Q2

REPORT INFORMATION
  Report Type: Spontaneous
  Country: US (occurrence: US)
  Receive Date: 20170420
  Receipt Date: 20170420
  Transmission Date: 20170830
  Serious: Yes (Other)
  Sender: FDA-Public Use
  Company Number: US-ROCHE-718941

PATIENT
  Age: 16 Year
  Sex: Female
  Weight: 77.1 kg

DRUGS (2)
  1. ACCUTANE [Suspect]
     Active Substance: ISOTRETINOIN
     Indication: ACNE
     Route: 065
     Dates: start: 20021001, end: 20021126
  2. ACCUTANE [Suspect]
     Active Substance: ISOTRETINOIN
     Route: 065
     Dates: start: 20021209, end: 20030412

REACTIONS (9)
  - Bronchitis [Unknown]
  - Depression [Unknown]
  - Blood triglycerides increased [Unknown]
  - Cheilitis [Unknown]
  - Eczema asteatotic [Unknown]
  - Gastrointestinal injury [Unknown]
  - Xerosis [Unknown]
  - Colitis ulcerative [Unknown]
  - Inflammatory bowel disease [Unknown]

NARRATIVE: CASE EVENT DATE: 20021029
